FAERS Safety Report 6962548-5 (Version None)
Quarter: 2010Q3

REPORT INFORMATION
  Report Type: 
  Country: None (occurrence: None)
  Receive Date: 20100831
  Receipt Date: 20100826
  Transmission Date: 20110219
  Serious: Yes (Other)
  Sender: FDA-Public Use
  Company Number: 20108970

PATIENT
  Sex: Male

DRUGS (1)
  1. LIORESAL [Suspect]
     Indication: MUSCLE SPASTICITY
     Dosage: ~ 600 MCG, DAILY, INTRATHECAL
     Route: 037

REACTIONS (8)
  - DEVICE BREAKAGE [None]
  - DEVICE DISLOCATION [None]
  - IMPLANT SITE REACTION [None]
  - MUSCLE SPASTICITY [None]
  - OVERDOSE [None]
  - PAIN [None]
  - PYREXIA [None]
  - RESPIRATORY DEPRESSION [None]
